FAERS Safety Report 5289566-X (Version None)
Quarter: 2007Q2

REPORT INFORMATION
  Report Type: 
  Country: None (occurrence: None)
  Receive Date: 20070406
  Receipt Date: 20070329
  Transmission Date: 20071010
  Serious: Yes (Hospitalization)
  Sender: FDA-Public Use
  Company Number: SE-ROCHE-488539

PATIENT
  Age: 61 Day
  Sex: Male
  Weight: 5.5 kg

DRUGS (1)
  1. LARIAM [Suspect]
     Indication: MALARIA PROPHYLAXIS
     Dosage: REPORTED DOSAGE REGIMEN: 62.MG1 MG 1.
     Route: 048
     Dates: start: 20061224, end: 20061224

REACTIONS (2)
  - DYSPNOEA [None]
  - INCREASED BRONCHIAL SECRETION [None]
